FAERS Safety Report 4853990-7 (Version None)
Quarter: 2005Q4

REPORT INFORMATION
  Report Type: 
  Country: None (occurrence: None)
  Receive Date: 20051213
  Receipt Date: 20051129
  Transmission Date: 20060501
  Serious: Yes (Life-Threatening)
  Sender: FDA-Public Use
  Company Number: 2005S1010594

PATIENT
  Age: 55 Year
  Sex: Male
  Weight: 74.8435 kg

DRUGS (3)
  1. MAPROTILINE HYDROCHLORIDE [Suspect]
     Indication: DEPRESSION
     Dosage: 75 MG; HS; ORAL; 100 MG; HS; ORAL
     Route: 048
     Dates: start: 20050801
  2. INSULIN LISPRO [Concomitant]
  3. INSULIN GLARGINE [Concomitant]

REACTIONS (2)
  - HYPOGLYCAEMIA [None]
  - LOSS OF CONSCIOUSNESS [None]
